FAERS Safety Report 9407526 (Version 2)
Quarter: 2013Q3

REPORT INFORMATION
  Report Type: Report from Study
  Country: RU (occurrence: RU)
  Receive Date: 20130718
  Receipt Date: 20130806
  Transmission Date: 20140515
  Serious: Yes (Hospitalization)
  Sender: FDA-Public Use
  Company Number: RU-GILEAD-2013-0078880

PATIENT
  Age: 13 Year
  Sex: Female

DRUGS (7)
  1. AMBRISENTAN [Suspect]
     Indication: PULMONARY ARTERIAL HYPERTENSION
     Dosage: 5 MG, QD
     Route: 048
     Dates: start: 20130516, end: 20130707
  2. AMBRISENTAN [Suspect]
     Dosage: 5MG PER DAY
     Route: 048
     Dates: start: 20130516, end: 20130707
  3. CEFAZOLIN SODIUM [Concomitant]
     Indication: INFECTION PROPHYLAXIS
     Dosage: 100 MG/KG, QD
     Route: 048
     Dates: start: 201306, end: 201306
  4. AMLODIPIN                          /00972401/ [Concomitant]
     Indication: PULMONARY ARTERIAL HYPERTENSION
     Dosage: 5 MG, QD
     Route: 048
     Dates: start: 20130619, end: 20130701
  5. CARDIOMAGNYL [Concomitant]
     Indication: PULMONARY ARTERIAL HYPERTENSION
     Dosage: 35 MG, QD
     Route: 048
     Dates: start: 20130619, end: 20130701
  6. ASPARCAM [Concomitant]
     Indication: PULMONARY ARTERIAL HYPERTENSION
     Dosage: 0.5 DF, TID
     Route: 048
     Dates: start: 20130619, end: 20130701
  7. VEROSPIRON [Concomitant]
     Indication: PULMONARY ARTERIAL HYPERTENSION
     Dosage: 1 DF, QD
     Route: 048
     Dates: start: 20130619, end: 20130701

REACTIONS (1)
  - General physical health deterioration [Recovered/Resolved]
